FAERS Safety Report 22587359 (Version 6)
Quarter: 2023Q2

REPORT INFORMATION
  Report Type: Report from Study
  Country: TH (occurrence: None)
  Receive Date: 20230612
  Receipt Date: 20230630
  Transmission Date: 20230722
  Serious: Yes (Death, Hospitalization)
  Sender: FDA-Public Use
  Company Number: TH-ROCHE-3343673

PATIENT
  Age: 24 Year
  Sex: Male
  Weight: 69.4 kg

DRUGS (37)
  1. MOSUNETUZUMAB [Suspect]
     Active Substance: MOSUNETUZUMAB
     Indication: B-cell lymphoma
     Dosage: ON 26/APR/2023, HE RECEIVED MOST RECENT DOSE (45 MG) OF MOSUNETUZUMAB PRIOR TO SAE/AE.?ON 12/MAY/202
     Route: 058
     Dates: start: 20230419
  2. POLATUZUMAB VEDOTIN [Suspect]
     Active Substance: POLATUZUMAB VEDOTIN
     Indication: B-cell lymphoma
     Dosage: START DATE OF MOST RECENT DOSE OF STUDY DRUG PRIOR TO AE/SAE 19-APR-2023, 124.9 MG
     Route: 042
     Dates: start: 20230419
  3. TOCILIZUMAB [Suspect]
     Active Substance: TOCILIZUMAB
     Indication: Cytokine release syndrome
     Dosage: ON 03/MAY/2023, HE RECEIVED MOST RECENT DOSE OF TOCILIZUMAB PRIOR TO AE/SAE 520 MG.
     Route: 042
     Dates: start: 20230503
  4. POTASSIUM CHLORIDE [Concomitant]
     Active Substance: POTASSIUM CHLORIDE
     Indication: Hypokalaemia
     Dates: end: 20230418
  5. PREDNISOLONE [Concomitant]
     Active Substance: PREDNISOLONE
     Indication: Secondary adrenocortical insufficiency
     Route: 048
     Dates: end: 20230418
  6. PREDNISOLONE [Concomitant]
     Active Substance: PREDNISOLONE
     Route: 048
     Dates: start: 20230503, end: 20230504
  7. COTRIMOXAZOLE [Concomitant]
     Active Substance: SULFAMETHOXAZOLE\TRIMETHOPRIM
  8. FOLIC ACID [Concomitant]
     Active Substance: FOLIC ACID
     Dates: end: 20230520
  9. OMEPRAZOLE [Concomitant]
     Active Substance: OMEPRAZOLE
     Indication: Prophylaxis
     Dates: end: 20230508
  10. OMEPRAZOLE [Concomitant]
     Active Substance: OMEPRAZOLE
     Indication: Infection
     Dates: start: 20230518, end: 20230520
  11. MAGNESIUM OXIDE [Concomitant]
     Active Substance: MAGNESIUM OXIDE
     Dates: end: 20230418
  12. ACYCLOVIR [Concomitant]
     Active Substance: ACYCLOVIR
  13. CHLORPHENIRAMINE [Concomitant]
     Active Substance: CHLORPHENIRAMINE
     Indication: Premedication
     Dates: start: 20230419, end: 20230419
  14. CHLORPHENIRAMINE [Concomitant]
     Active Substance: CHLORPHENIRAMINE
     Dates: start: 20230426, end: 20230426
  15. CHLORPHENIRAMINE [Concomitant]
     Active Substance: CHLORPHENIRAMINE
     Dates: start: 20230512, end: 20230512
  16. DEXAMETHASONE [Concomitant]
     Active Substance: DEXAMETHASONE
     Indication: Premedication
     Route: 042
     Dates: start: 20230419, end: 20230419
  17. DEXAMETHASONE [Concomitant]
     Active Substance: DEXAMETHASONE
     Route: 042
     Dates: start: 20230426, end: 20230426
  18. DEXAMETHASONE [Concomitant]
     Active Substance: DEXAMETHASONE
     Route: 042
     Dates: start: 20230512, end: 20230512
  19. DEXAMETHASONE [Concomitant]
     Active Substance: DEXAMETHASONE
     Route: 042
     Dates: start: 20230504, end: 20230505
  20. DEXAMETHASONE [Concomitant]
     Active Substance: DEXAMETHASONE
     Route: 042
     Dates: start: 20230506, end: 20230507
  21. DEXAMETHASONE [Concomitant]
     Active Substance: DEXAMETHASONE
     Route: 042
     Dates: start: 20230508, end: 20230509
  22. VASOPRESSIN [Concomitant]
     Active Substance: VASOPRESSIN
     Indication: Hypotension
  23. FLUCONAZOLE [Concomitant]
     Active Substance: FLUCONAZOLE
  24. OXYGEN [Concomitant]
     Active Substance: OXYGEN
     Indication: Hypoxia
  25. TOLPERISONE [Concomitant]
     Active Substance: TOLPERISONE
     Indication: Myalgia
     Dates: end: 20230418
  26. TRAMADOL [Concomitant]
     Active Substance: TRAMADOL
     Indication: Myalgia
     Dates: end: 20230418
  27. PIPERACILLIN SODIUM\TAZOBACTAM SODIUM [Concomitant]
     Active Substance: PIPERACILLIN SODIUM\TAZOBACTAM SODIUM
     Indication: Cytokine release syndrome
     Dates: start: 20230423, end: 20230425
  28. PIPERACILLIN SODIUM\TAZOBACTAM SODIUM [Concomitant]
     Active Substance: PIPERACILLIN SODIUM\TAZOBACTAM SODIUM
     Indication: COVID-19 pneumonia
  29. LEVOFLOXACIN [Concomitant]
     Active Substance: LEVOFLOXACIN
     Dates: start: 20230426, end: 20230428
  30. SENOLAX [Concomitant]
     Indication: Constipation
     Dates: start: 20230421, end: 20230516
  31. BISOPROLOL [Concomitant]
     Active Substance: BISOPROLOL
     Indication: Sinus tachycardia
     Dates: start: 20230430, end: 20230517
  32. MEROPENEM [Concomitant]
     Active Substance: MEROPENEM
     Indication: Cytokine release syndrome
     Route: 042
     Dates: start: 20230502, end: 20230502
  33. MEROPENEM [Concomitant]
     Active Substance: MEROPENEM
     Route: 042
     Dates: start: 20230503, end: 20230506
  34. IVERMECTIN [Concomitant]
     Active Substance: IVERMECTIN
     Indication: Prophylaxis
     Dates: start: 20230505, end: 20230506
  35. NEXIUM [Concomitant]
     Active Substance: ESOMEPRAZOLE MAGNESIUM
     Indication: Prophylaxis
     Dates: start: 20230509, end: 20230517
  36. ENOXAPARIN [Concomitant]
     Active Substance: ENOXAPARIN
     Indication: Prophylaxis
     Dates: start: 20230520
  37. ACETAR (THAILAND) [Concomitant]
     Indication: Lactic acidosis
     Dates: start: 20230520

REACTIONS (3)
  - COVID-19 pneumonia [Fatal]
  - Pneumonitis [Recovering/Resolving]
  - Cytokine release syndrome [Recovered/Resolved]

NARRATIVE: CASE EVENT DATE: 20230502
